FAERS Safety Report 19353037 (Version 1)
Quarter: 2021Q2

REPORT INFORMATION
  Report Type: Report from Study
  Country: BR (occurrence: BR)
  Receive Date: 20210531
  Receipt Date: 20210531
  Transmission Date: 20210717
  Serious: Yes (Hospitalization)
  Sender: FDA-Public Use
  Company Number: BR-BIOGEN-2020BI00829170

PATIENT
  Sex: Female

DRUGS (6)
  1. CARBAMAZEPINE. [Concomitant]
     Active Substance: CARBAMAZEPINE
     Indication: TRIGEMINAL NEURALGIA
     Dosage: 2 TABLETS IN THE MORNING, 1 IN THE AFTERNOON AND 2 AT THE NIGHT.
     Route: 048
  2. AVONEX PEN [Suspect]
     Active Substance: INTERFERON BETA-1A
     Indication: MULTIPLE SCLEROSIS
     Route: 030
     Dates: start: 2011, end: 2020
  3. AVONEX PEN [Suspect]
     Active Substance: INTERFERON BETA-1A
     Route: 030
     Dates: start: 2012
  4. PREGABALIN. [Concomitant]
     Active Substance: PREGABALIN
     Indication: TRIGEMINAL NEURALGIA
     Route: 065
  5. AVONEX PEN [Suspect]
     Active Substance: INTERFERON BETA-1A
  6. AVONEX PEN [Suspect]
     Active Substance: INTERFERON BETA-1A

REACTIONS (6)
  - Multiple sclerosis [Not Recovered/Not Resolved]
  - Drug ineffective [Unknown]
  - Eating disorder [Recovered/Resolved]
  - Fluid intake reduced [Recovered/Resolved]
  - Sedation [Recovered/Resolved]
  - Multiple sclerosis relapse [Recovered/Resolved]
